FAERS Safety Report 4405461-X (Version None)
Quarter: 2004Q3

REPORT INFORMATION
  Report Type: 
  Country: None (occurrence: None)
  Receive Date: 20040723
  Receipt Date: 20030902
  Transmission Date: 20050211
  Serious: No
  Sender: FDA-Public Use
  Company Number: US-GLAXOSMITHKLINE-A0424601A

PATIENT
  Sex: Male

DRUGS (5)
  1. AVANDIA [Suspect]
     Route: 048
     Dates: end: 20020206
  2. GLUCOTROL [Concomitant]
  3. VALTREX [Concomitant]
     Route: 048
  4. PEPCID AC [Concomitant]
     Indication: GASTRIC ULCER
     Route: 048
  5. TAGAMET [Concomitant]
     Indication: GASTRIC ULCER
     Route: 048

REACTIONS (8)
  - ARTHRALGIA [None]
  - BLADDER DISORDER [None]
  - CHEST PAIN [None]
  - FATIGUE [None]
  - GROIN PAIN [None]
  - HEADACHE [None]
  - PAIN [None]
  - PAIN IN EXTREMITY [None]
